FAERS Safety Report 8838202 (Version 2)
Quarter: 2015Q2

REPORT INFORMATION
  Report Type: Report from Study
  Country: US (occurrence: US)
  Receive Date: 20121012
  Receipt Date: 20150420
  Transmission Date: 20150821
  Serious: Yes (Death, Other)
  Sender: FDA-Public Use
  Company Number: US-ROCHE-1110976

PATIENT
  Sex: Male
  Weight: 6.3 kg

DRUGS (5)
  1. NUTROPIN AQ [Suspect]
     Active Substance: SOMATROPIN
     Indication: ENCHONDROMATOSIS
  2. NUTROPIN AQ [Suspect]
     Active Substance: SOMATROPIN
     Indication: CHONDRODYSTROPHY
     Dosage: FORM STRENGTH 5 MG
     Route: 058
  3. NUTROPIN AQ [Suspect]
     Active Substance: SOMATROPIN
     Indication: ENCHONDROMATOSIS
  4. NUTROPIN AQ [Suspect]
     Active Substance: SOMATROPIN
     Indication: ENCHONDROMATOSIS
  5. NUTROPIN AQ [Suspect]
     Active Substance: SOMATROPIN
     Indication: CHONDRODYSTROPHY

REACTIONS (2)
  - Death [Fatal]
  - Malnutrition [Unknown]
